FAERS Safety Report 7852921-5 (Version None)
Quarter: 2011Q4

REPORT INFORMATION
  Report Type: 
  Country: None (occurrence: None)
  Receive Date: 20111026
  Receipt Date: 20100208
  Transmission Date: 20120403
  Serious: No
  Sender: FDA-Public Use
  Company Number: US-BAYER-201013539NA

PATIENT
  Sex: Male

DRUGS (1)
  1. LEVITRA [Suspect]
     Dosage: HALF A PILL
     Route: 048
     Dates: start: 20100205

REACTIONS (1)
  - NO ADVERSE EVENT [None]
